FAERS Safety Report 4656263-0 (Version None)
Quarter: 2005Q2

REPORT INFORMATION
  Report Type: 
  Country: None (occurrence: None)
  Receive Date: 20050509
  Receipt Date: 20050318
  Transmission Date: 20051028
  Serious: No
  Sender: FDA-Public Use
  Company Number: US-GLAXOSMITHKLINE-A0550464A

PATIENT
  Sex: Female

DRUGS (4)
  1. AVANDAMET [Suspect]
     Dosage: 1MG TWICE PER DAY
     Route: 048
  2. LISINOPRIL [Concomitant]
     Route: 065
  3. ATENOLOL [Concomitant]
  4. LASIX [Concomitant]

REACTIONS (4)
  - DYSPNOEA [None]
  - ERYTHEMA [None]
  - RASH [None]
  - WEIGHT INCREASED [None]
